FAERS Safety Report 4890795-5 (Version None)
Quarter: 2006Q1

REPORT INFORMATION
  Report Type: 
  Country: None (occurrence: None)
  Receive Date: 20060123
  Receipt Date: 20060112
  Transmission Date: 20060701
  Serious: Yes (Hospitalization, Other)
  Sender: FDA-Public Use
  Company Number: 2006007805

PATIENT
  Age: 23 Year
  Sex: Female
  Weight: 49.8957 kg

DRUGS (2)
  1. GEODON [Suspect]
     Indication: SCHIZOPHRENIA
     Dosage: (1 IN 1 D)
     Dates: start: 20040401
  2. TRAZODONE HCL [Suspect]
     Indication: FATIGUE
     Dosage: 50 MG (50 MG, 1 IN 1 D)
     Dates: start: 20051201

REACTIONS (3)
  - ABNORMAL BEHAVIOUR [None]
  - MANIA [None]
  - ROAD TRAFFIC ACCIDENT [None]
